FAERS Safety Report 5551975-9 (Version None)
Quarter: 2007Q4

REPORT INFORMATION
  Report Type: 
  Country: None (occurrence: None)
  Receive Date: 20071212
  Receipt Date: 20071203
  Transmission Date: 20080405
  Serious: Yes (Other)
  Sender: FDA-Public Use
  Company Number: US-PFIZER INC-2007102330

PATIENT
  Age: 64 Year
  Sex: Female

DRUGS (2)
  1. LIPITOR [Suspect]
  2. ZETIA [Concomitant]

REACTIONS (3)
  - LOW DENSITY LIPOPROTEIN INCREASED [None]
  - MOVEMENT DISORDER [None]
  - PERIPHERAL SENSORY NEUROPATHY [None]
